FAERS Safety Report 4336045-X (Version None)
Quarter: 2004Q2

REPORT INFORMATION
  Report Type: 
  Country: None (occurrence: None)
  Receive Date: 20040406
  Receipt Date: 20021113
  Transmission Date: 20050107
  Serious: Yes (Hospitalization)
  Sender: FDA-Public Use
  Company Number: 2002IC000316

PATIENT
  Age: 42 Year
  Sex: Male

DRUGS (7)
  1. FLUOROURACIL [Suspect]
     Indication: COLON CANCER
     Dosage: 750 MG; INTRAVENOUS
     Route: 042
     Dates: start: 20020423, end: 20020703
  2. ISOVORIN [Suspect]
     Indication: COLON CANCER
     Dosage: 400 MG; INTRAVENOUS
     Route: 042
     Dates: start: 20020423, end: 20020703
  3. IRINOTECAN [Concomitant]
  4. HYDROCHLORIDE [Concomitant]
  5. ANPEC [Concomitant]
  6. FLUMARIN [Concomitant]
  7. MEROPEN [Concomitant]

REACTIONS (6)
  - ABDOMINAL PAIN LOWER [None]
  - ABSCESS [None]
  - BACK PAIN [None]
  - CONDITION AGGRAVATED [None]
  - IMMUNOSUPPRESSION [None]
  - TUMOUR NECROSIS [None]
